FAERS Safety Report 23960209 (Version 1)
Quarter: 2024Q2

REPORT INFORMATION
  Report Type: Spontaneous
  Country: IT (occurrence: None)
  Receive Date: 20240611
  Receipt Date: 20240611
  Transmission Date: 20240716
  Serious: No
  Sender: FDA-Public Use
  Company Number: IT-ROCHE-3579120

PATIENT
  Sex: Male

DRUGS (1)
  1. OCRELIZUMAB [Suspect]
     Active Substance: OCRELIZUMAB
     Indication: Product used for unknown indication
     Route: 065

REACTIONS (1)
  - Pneumonia influenzal [Unknown]
